FAERS Safety Report 18960090 (Version 2)
Quarter: 2021Q2

REPORT INFORMATION
  Report Type: Spontaneous
  Country: JP (occurrence: JP)
  Receive Date: 20210303
  Receipt Date: 20210531
  Transmission Date: 20210717
  Serious: Yes (Other)
  Sender: FDA-Public Use
  Company Number: JP-TAKEDA-2021TJP007008

PATIENT
  Age: 41 Year
  Sex: Male

DRUGS (3)
  1. ADYNOVATE [Suspect]
     Active Substance: ANTIHEMOPHILIC FACTOR, HUMAN RECOMBINANT
     Indication: HAEMORRHAGIC DIATHESIS
     Dosage: 2000 INTERNATIONAL UNIT, 2/WEEK
     Route: 042
  2. ADYNOVATE [Suspect]
     Active Substance: ANTIHEMOPHILIC FACTOR, HUMAN RECOMBINANT
     Indication: HAEMORRHAGIC DIATHESIS
     Dosage: 2000 INTERNATIONAL UNIT, 2/WEEK
     Route: 042
  3. ADYNOVATE [Suspect]
     Active Substance: ANTIHEMOPHILIC FACTOR, HUMAN RECOMBINANT
     Indication: HAEMORRHAGIC DIATHESIS
     Dosage: 2000 INTERNATIONAL UNIT, 2/WEEK
     Route: 042

REACTIONS (3)
  - Feeling abnormal [Unknown]
  - Haemarthrosis [Unknown]
  - Pruritus [Unknown]

NARRATIVE: CASE EVENT DATE: 20210105
